FAERS Safety Report 15335416 (Version 3)
Quarter: 2018Q4

REPORT INFORMATION
  Report Type: Report from Study
  Country: CA (occurrence: CA)
  Receive Date: 20180830
  Receipt Date: 20181026
  Transmission Date: 20190204
  Serious: Yes (Other)
  Sender: FDA-Public Use
  Company Number: CA-JNJFOC-20180835265

PATIENT
  Age: 33 Year
  Sex: Female
  Weight: 46 kg

DRUGS (1)
  1. STELARA [Suspect]
     Active Substance: USTEKINUMAB
     Indication: CROHN^S DISEASE
     Route: 058
     Dates: start: 20170228

REACTIONS (4)
  - Diarrhoea [Not Recovered/Not Resolved]
  - Anal abscess [Recovering/Resolving]
  - Abdominal pain [Not Recovered/Not Resolved]
  - Mucous stools [Unknown]

NARRATIVE: CASE EVENT DATE: 201808
